FAERS Safety Report 9251374 (Version 2)
Quarter: 2014Q1

REPORT INFORMATION
  Report Type: Spontaneous
  Country: US (occurrence: None)
  Receive Date: 20130305
  Receipt Date: 20140306
  Transmission Date: 20141002
  Serious: Yes (Other)
  Sender: FDA-Public Use
  Company Number: 163-21880-12093407

PATIENT
  Age: 64 Year
  Sex: Male

DRUGS (15)
  1. REVLIMID (LENALIDOMIDE) (25 MILLIGRAM, CAPSULES) [Suspect]
     Indication: PLASMA CELL MYELOMA
     Dosage: 25 MG, 1 IN 1 D, PO
     Route: 048
     Dates: start: 20111201
  2. VELCADE (BORTEZOMIB) (UNKNOWN) [Concomitant]
  3. DEXAMETHASONE (DEXAMETHASONE) (UNKNOWN) [Concomitant]
  4. FUROSEMIDE (FUROSEMIDE) (UNKNOWN) [Concomitant]
  5. LUPRON (LEUPRORELIN ACETATE) (UNKNOWN) [Concomitant]
  6. ZOMETA (ZOLEDRONIC ACID) (UNKNOWN) [Concomitant]
  7. TAMSULOSIN (TAMSULOSIN) (UNKNOWN) [Concomitant]
  8. VALTREX (VALACICLOVIR HYDROCHLORIDE) (UNKNOWN) [Concomitant]
  9. CETRIZINE (CETIRIZINE HYDROCHLORIDE) (UNKNOWN) [Concomitant]
  10. KLOR-CON (POTASSIUM CHLORIDE) (UNKNOWN) [Concomitant]
  11. VITAMIN B COMPLEX (B-KOMPLEX ^LECIVA^) (UNKNOWN) [Concomitant]
  12. VITAMIN B12 (CYANOCOBALAMIN) (UNKNOWN) [Concomitant]
  13. PROBIOTIC (BIFIDOBACTERIUM LACTIS) (UNKNOWN) [Concomitant]
  14. MULTIVITAMINS (MULTIVITAMINS) (UNKNOWN) [Concomitant]
  15. SLOW-MAG (MAGNESIUM CHLORIDE ANHYDROUS) (UNKNOWN)? [Concomitant]

REACTIONS (6)
  - Thrombosis [None]
  - White blood cell count decreased [None]
  - Neuropathy peripheral [None]
  - Full blood count decreased [None]
  - Neutropenia [None]
  - Thrombophlebitis superficial [None]
